FAERS Safety Report 11337918 (Version 1)
Quarter: 2015Q3

REPORT INFORMATION
  Report Type: Spontaneous
  Country: US (occurrence: US)
  Receive Date: 20150803
  Receipt Date: 20150803
  Transmission Date: 20151125
  Serious: Yes (Hospitalization, Disabling)
  Sender: FDA-Public Use
  Company Number: US-ELI_LILLY_AND_COMPANY-US200911004707

PATIENT
  Sex: Male
  Weight: 108.39 kg

DRUGS (4)
  1. SEROQUEL [Concomitant]
     Active Substance: QUETIAPINE FUMARATE
     Dosage: 100 MG, EACH EVENING
  2. ZYPREXA [Suspect]
     Active Substance: OLANZAPINE
     Dosage: 1 D/F, UNK
     Dates: start: 2005
  3. DIAZEPAM. [Concomitant]
     Active Substance: DIAZEPAM
     Dosage: 30 MG, EACH EVENING
  4. ALPRAZOLAM. [Concomitant]
     Active Substance: ALPRAZOLAM
     Indication: HALLUCINATION, AUDITORY

REACTIONS (6)
  - Diabetes mellitus [Not Recovered/Not Resolved]
  - Weight increased [Not Recovered/Not Resolved]
  - Hypertriglyceridaemia [Unknown]
  - Hypertension [Unknown]
  - Depression [Unknown]
  - Obesity [Unknown]

NARRATIVE: CASE EVENT DATE: 2007
